FAERS Safety Report 10406673 (Version 1)
Quarter: 2014Q3

REPORT INFORMATION
  Report Type: Spontaneous
  Country: US (occurrence: US)
  Receive Date: 20140825
  Receipt Date: 20140825
  Transmission Date: 20150326
  Serious: No
  Sender: FDA-Public Use
  Company Number: US-PFIZER INC-2014232859

PATIENT
  Age: 62 Year
  Sex: Female
  Weight: 96.15 kg

DRUGS (10)
  1. LYRICA [Suspect]
     Active Substance: PREGABALIN
     Indication: DIABETIC NEUROPATHY
     Dosage: 50 MG, 2X/DAY
     Route: 048
     Dates: start: 20140808
  2. LANTUS [Concomitant]
     Active Substance: INSULIN GLARGINE
     Dosage: 38 IU, AT BED TIME
  3. HUMALOG 70/30 [Concomitant]
     Active Substance: INSULIN HUMAN
     Dosage: 70/30, 2X/DAY
  4. HUMALOG [Concomitant]
     Active Substance: INSULIN LISPRO
     Dosage: 8 IU, 3X/DAY
  5. JANUVIA [Concomitant]
     Active Substance: SITAGLIPTIN PHOSPHATE
     Dosage: 100 MG, 1X/DAY
  6. METFORMIN [Concomitant]
     Active Substance: METFORMIN HYDROCHLORIDE
     Dosage: 1000 MG, 2X/DAY
  7. LEVOXYL [Concomitant]
     Active Substance: LEVOTHYROXINE SODIUM
     Dosage: 250 UG, 1X/DAY (TAKING TWO PILLS OF 125MCG ONE TIME A DAY)
  8. HYDROCODONE [Concomitant]
     Active Substance: HYDROCODONE
     Dosage: 10/325, EVERY SIX HOURS
  9. LORAZEPAM. [Concomitant]
     Active Substance: LORAZEPAM
     Dosage: 1 MG, AS NEEDED
  10. VITAMIN D2 [Concomitant]
     Active Substance: ERGOCALCIFEROL
     Dosage: 1.25 MG (50000 UNIT), 2X/WEEK

REACTIONS (1)
  - Pain [Unknown]

NARRATIVE: CASE EVENT DATE: 201408
